FAERS Safety Report 23270116 (Version 1)
Quarter: 2023Q4

REPORT INFORMATION
  Report Type: Spontaneous
  Country: ES (occurrence: ES)
  Receive Date: 20231207
  Receipt Date: 20231207
  Transmission Date: 20240109
  Serious: Yes (Other)
  Sender: FDA-Public Use
  Company Number: ES-AMGEN-ESPSP2023213624

PATIENT
  Age: 18 Year
  Sex: Female

DRUGS (2)
  1. BEVACIZUMAB [Suspect]
     Active Substance: BEVACIZUMAB
     Indication: Neurofibromatosis
     Dosage: UNK
     Route: 065
  2. BEVACIZUMAB [Suspect]
     Active Substance: BEVACIZUMAB
     Dosage: REDUCING THE DOSE
     Route: 065

REACTIONS (5)
  - Glomerulonephritis [Unknown]
  - Cryoglobulinaemia [Unknown]
  - Neurofibromatosis [Unknown]
  - Off label use [Unknown]
  - Hypertension [Unknown]
